FAERS Safety Report 5890835-0 (Version None)
Quarter: 2008Q3

REPORT INFORMATION
  Report Type: 
  Country: None (occurrence: None)
  Receive Date: 20080818
  Receipt Date: 20080205
  Transmission Date: 20090109
  Serious: No
  Sender: FDA-Public Use
  Company Number: 20084737

PATIENT
  Sex: Female

DRUGS (2)
  1. LIORESAL [Suspect]
     Indication: MUSCLE SPASTICITY
     Dosage: APPROXIMATELY 120 MCG, DAILY, INTR
     Route: 037
  2. ORAL BACLOFEN [Concomitant]

REACTIONS (2)
  - DRUG INEFFECTIVE [None]
  - HYPERTONIA [None]
